FAERS Safety Report 4431320-2 (Version None)
Quarter: 2004Q3

REPORT INFORMATION
  Report Type: 
  Country: None (occurrence: None)
  Receive Date: 20040824
  Receipt Date: 20040813
  Transmission Date: 20050211
  Serious: Yes (Hospitalization, Other)
  Sender: FDA-Public Use
  Company Number: NL-JNJFOC-20030802863

PATIENT
  Sex: Female
  Weight: 48 kg

DRUGS (5)
  1. RISPERDAL [Suspect]
     Route: 049
  2. RISPERDAL [Suspect]
     Route: 049
  3. OXAZEPAM [Concomitant]
  4. LIBRIUM [Concomitant]
     Route: 049
  5. THYRAX [Concomitant]
     Route: 049

REACTIONS (8)
  - DIZZINESS [None]
  - DYSKINESIA [None]
  - EXTRAPYRAMIDAL DISORDER [None]
  - FACE OEDEMA [None]
  - INFLUENZA [None]
  - MELAENA [None]
  - URINARY INCONTINENCE [None]
  - VISION BLURRED [None]
